FAERS Safety Report 6840060-1 (Version None)
Quarter: 2010Q3

REPORT INFORMATION
  Report Type: 
  Country: None (occurrence: None)
  Receive Date: 20100714
  Receipt Date: 20100709
  Transmission Date: 20110219
  Serious: Yes (Death, Hospitalization)
  Sender: FDA-Public Use
  Company Number: CO-ROCHE-714295

PATIENT
  Sex: Female

DRUGS (5)
  1. AVASTIN [Suspect]
     Indication: BREAST CANCER
     Route: 042
     Dates: start: 20091124, end: 20100124
  2. TRAMADOL [Concomitant]
     Indication: PAIN
     Route: 048
  3. ACETAMINOPHEN [Concomitant]
     Indication: PAIN
     Route: 048
  4. CAPTOPRIL [Concomitant]
     Route: 048
  5. THIAMINE [Concomitant]
     Dosage: FREQUENCY:QD
     Route: 048

REACTIONS (1)
  - MALIGNANT NEOPLASM PROGRESSION [None]
